FAERS Safety Report 10541729 (Version 1)
Quarter: 2014Q4

REPORT INFORMATION
  Report Type: Spontaneous
  Country: US (occurrence: US)
  Receive Date: 20141024
  Receipt Date: 20141024
  Transmission Date: 20150529
  Serious: No
  Sender: FDA-Public Use
  Company Number: US-ALLERGAN-1406982US

PATIENT
  Age: 74 Year
  Sex: Female

DRUGS (6)
  1. ASA [Concomitant]
     Active Substance: ASPIRIN
     Indication: PRODUCT USED FOR UNKNOWN INDICATION
  2. NIASPAN [Concomitant]
     Active Substance: NIACIN
     Indication: PRODUCT USED FOR UNKNOWN INDICATION
  3. SYSTANE (HYPROMELLOSE 2910 (4000 MPA.S)) [Concomitant]
     Active Substance: HYPROMELLOSE 2910 (4000 MPA.S)
     Indication: DRY EYE
  4. GENTEAL                            /00445101/ [Concomitant]
     Indication: DRY EYE
  5. ALPHAGAN P [Suspect]
     Active Substance: BRIMONIDINE TARTRATE
     Indication: INTRAOCULAR PRESSURE INCREASED
     Dosage: 2 GTT, BID
     Dates: start: 201305
  6. SYNTHROID [Concomitant]
     Active Substance: LEVOTHYROXINE SODIUM
     Indication: PRODUCT USED FOR UNKNOWN INDICATION

REACTIONS (8)
  - Eyelid oedema [Recovered/Resolved]
  - Agitation [Recovered/Resolved]
  - Sensory disturbance [Unknown]
  - Scleral discolouration [Unknown]
  - Dry eye [Unknown]
  - Inappropriate schedule of drug administration [Unknown]
  - Eye disorder [Unknown]
  - Erythema of eyelid [Unknown]
